FAERS Safety Report 7225976-9 (Version None)
Quarter: 2011Q1

REPORT INFORMATION
  Report Type: 
  Country: None (occurrence: None)
  Receive Date: 20110113
  Receipt Date: 20110110
  Transmission Date: 20110831
  Serious: Yes (Other)
  Sender: FDA-Public Use
  Company Number: GB-PFIZER INC-2011004538

PATIENT
  Age: 42 Year
  Sex: Male
  Weight: 91.5 kg

DRUGS (2)
  1. ATORVASTATIN CALCIUM [Suspect]
     Indication: HYPERLIPIDAEMIA
     Dosage: 20 MG, 1X/DAY
     Route: 048
     Dates: start: 20090930
  2. BEZAFIBRATE [Suspect]
     Indication: BLOOD TRIGLYCERIDES INCREASED
     Dosage: 400 MG, 1X/DAY
     Route: 048
     Dates: start: 20091209

REACTIONS (1)
  - DEEP VEIN THROMBOSIS [None]
